FAERS Safety Report 7579567-0 (Version None)
Quarter: 2011Q2

REPORT INFORMATION
  Report Type: 
  Country: None (occurrence: None)
  Receive Date: 20110629
  Receipt Date: 20110623
  Transmission Date: 20111010
  Serious: Yes (Life-Threatening, Hospitalization)
  Sender: FDA-Public Use
  Company Number: AU-JNJFOC-20110611951

PATIENT
  Sex: Male
  Weight: 77 kg

DRUGS (8)
  1. OLANZAPINE [Concomitant]
     Indication: AGGRESSION
     Dates: start: 20110330
  2. DIAZEPAM [Concomitant]
     Indication: AGGRESSION
     Dates: start: 20110330
  3. TEMAZEPAM [Concomitant]
     Dates: start: 20110602
  4. TEMAZEPAM [Concomitant]
     Dates: start: 20110226
  5. VALPROATE SODIUM [Concomitant]
     Indication: AFFECTIVE DISORDER
     Dates: start: 20110301
  6. INVEGA SUSTENNA [Suspect]
     Indication: SCHIZOPHRENIA
     Route: 065
     Dates: start: 20110303
  7. ALCOHOL [Suspect]
     Indication: PRODUCT USED FOR UNKNOWN INDICATION
  8. PALIPERIDONE [Concomitant]
     Route: 048
     Dates: start: 20110420

REACTIONS (1)
  - SCHIZOPHRENIA [None]
